FAERS Safety Report 6929894-2 (Version None)
Quarter: 2010Q3

REPORT INFORMATION
  Report Type: 
  Country: None (occurrence: None)
  Receive Date: 20100817
  Receipt Date: 20100817
  Transmission Date: 20110219
  Serious: Yes (Disabling)
  Sender: FDA-Public Use
  Company Number: None

PATIENT
  Sex: Female
  Weight: 117.028 kg

DRUGS (1)
  1. RISPERIDONE [Suspect]
     Dosage: 1 PILL DAILY
     Dates: start: 20060101, end: 20100101

REACTIONS (17)
  - ABDOMINAL PAIN UPPER [None]
  - ALOPECIA [None]
  - ARTHRALGIA [None]
  - BURNING SENSATION [None]
  - CONTUSION [None]
  - DYSKINESIA [None]
  - DYSPHONIA [None]
  - ERYTHEMA [None]
  - FORMICATION [None]
  - HYPOAESTHESIA [None]
  - LIP DISORDER [None]
  - MUSCLE SPASMS [None]
  - MUSCULAR WEAKNESS [None]
  - OEDEMA PERIPHERAL [None]
  - PARAESTHESIA [None]
  - PHOTOSENSITIVITY REACTION [None]
  - SENSORY DISTURBANCE [None]
